FAERS Safety Report 9294670 (Version 8)
Quarter: 2014Q1

REPORT INFORMATION
  Report Type: Report from Study
  Country: US (occurrence: US)
  Receive Date: 20130517
  Receipt Date: 20140124
  Transmission Date: 20141002
  Serious: Yes (Hospitalization)
  Sender: FDA-Public Use
  Company Number: US-PFIZER INC-2013146975

PATIENT
  Age: 74 Year
  Sex: Male
  Weight: 88.44 kg

DRUGS (14)
  1. CELECOXIB [Suspect]
     Indication: OSTEOARTHRITIS
     Dosage: 100 MG, 2X/DAY
     Route: 048
     Dates: start: 20130410, end: 20130417
  2. ASPIRIN [Suspect]
     Indication: CARDIOVASCULAR EVENT PROPHYLAXIS
     Dosage: 81 MG, 1X/DAY
     Route: 048
     Dates: start: 20070925, end: 20130417
  3. NEXIUM [Concomitant]
     Indication: PROPHYLAXIS
     Dosage: 20 MG, 1X/DAY
     Route: 048
     Dates: start: 20130410
  4. MIRALAX [Concomitant]
     Indication: PROPHYLAXIS
     Dosage: 17 G, 1X/DAY
     Route: 048
     Dates: start: 2003
  5. LISINOPRIL [Concomitant]
     Indication: HYPERTENSION
     Dosage: 40 MG, 2X/DAY
     Route: 048
     Dates: start: 2009
  6. SIMVASTATIN [Concomitant]
     Indication: DYSLIPIDAEMIA
     Dosage: 20 MG, 1X/DAY
     Route: 048
     Dates: start: 2009
  7. VITAMIN D [Concomitant]
     Indication: ROUTINE HEALTH MAINTENANCE
     Dosage: 2000 IU, 1X/DAY
     Route: 048
     Dates: start: 2003
  8. FERROUS SULFATE [Concomitant]
     Indication: ANAEMIA
     Dosage: 86 MG, 1X/DAY
     Route: 048
     Dates: start: 2003
  9. VITAMIN C [Concomitant]
     Indication: ROUTINE HEALTH MAINTENANCE
     Dosage: 1000 MG, 1X/DAY
     Route: 048
     Dates: start: 2003
  10. GLUCOSAMINE/CHONDROITIN [Concomitant]
     Indication: PROPHYLAXIS
     Dosage: 1500/1200 MG, 1X/DAY
     Route: 048
     Dates: start: 2003
  11. FISH OIL [Concomitant]
     Indication: ROUTINE HEALTH MAINTENANCE
     Dosage: 1000 MG, 2X/DAY
     Route: 048
     Dates: start: 2003
  12. ZINC [Concomitant]
     Indication: ROUTINE HEALTH MAINTENANCE
     Dosage: 1 DF, 1X/DAY
     Route: 048
     Dates: start: 2003
  13. MELATONIN [Concomitant]
     Indication: SLEEP DISORDER
     Dosage: 9 MG, 1X/DAY
     Route: 048
     Dates: start: 2012
  14. DOXAZOSIN [Concomitant]
     Indication: BENIGN PROSTATIC HYPERPLASIA
     Dosage: UNK, EVERY 4 HOURS, DAILY
     Route: 048
     Dates: start: 20120207

REACTIONS (1)
  - Post procedural haemorrhage [Recovered/Resolved]
